FAERS Safety Report 5614228-6 (Version None)
Quarter: 2008Q1

REPORT INFORMATION
  Report Type: 
  Country: None (occurrence: None)
  Receive Date: 20080130
  Receipt Date: 20080114
  Transmission Date: 20080703
  Serious: Yes (Hospitalization)
  Sender: FDA-Public Use
  Company Number: VNL_00949_2008

PATIENT
  Sex: Male

DRUGS (1)
  1. APO-GO (APO-GO - APOMORPHINE HYDROCHLORIDE) (NOT SPECIFIED) [Suspect]
     Indication: DRUG USE FOR UNKNOWN INDICATION
     Dosage: (DF FOR 4 YEARS SUBCUTANEOUS)
     Route: 058

REACTIONS (3)
  - INFECTION [None]
  - INFUSION SITE NECROSIS [None]
  - PYREXIA [None]
